FAERS Safety Report 9852096 (Version 2)
Quarter: 2014Q1

REPORT INFORMATION
  Report Type: Spontaneous
  Country: BR (occurrence: BR)
  Receive Date: 20140129
  Receipt Date: 20140225
  Transmission Date: 20141002
  Serious: Yes (Other)
  Sender: FDA-Public Use
  Company Number: BR-ASTRAZENECA-2014SE04866

PATIENT
  Age: 647 Month
  Sex: Female
  Weight: 67 kg

DRUGS (6)
  1. BRILINTA [Suspect]
     Indication: ISCHAEMIC HEART DISEASE PROPHYLAXIS
     Route: 048
     Dates: start: 201306
  2. OMEPRAZOLE [Suspect]
     Indication: EPIGASTRIC DISCOMFORT
     Route: 048
     Dates: start: 201306
  3. PROPRANOLOL [Suspect]
     Indication: HYPERTENSION
     Route: 048
     Dates: start: 201306
  4. LOSARTAN [Concomitant]
     Indication: HYPERTENSION
     Dates: start: 201306
  5. ASA [Concomitant]
     Indication: THROMBOSIS PROPHYLAXIS
     Dosage: DAILY
     Dates: start: 201306
  6. SIMVASTATIN [Concomitant]
     Indication: BLOOD CHOLESTEROL INCREASED
     Dosage: 2 TABLETS DAILY, AT BEDTIME
     Dates: start: 201306

REACTIONS (1)
  - Weight increased [Not Recovered/Not Resolved]
